FAERS Safety Report 6774817-2 (Version None)
Quarter: 2010Q2

REPORT INFORMATION
  Report Type: 
  Country: None (occurrence: None)
  Receive Date: 20100617
  Receipt Date: 20100605
  Transmission Date: 20101027
  Serious: Yes (Death)
  Sender: FDA-Public Use
  Company Number: IN-SANOFI-AVENTIS-2010SA020282

PATIENT
  Age: 65 Year
  Sex: Female
  Weight: 45 kg

DRUGS (11)
  1. OXALIPLATIN [Suspect]
     Route: 041
     Dates: start: 20100225, end: 20100225
  2. OXALIPLATIN [Suspect]
     Route: 041
     Dates: start: 20100313, end: 20100313
  3. LEUCOVORIN CALCIUM [Suspect]
     Route: 041
     Dates: start: 20100225, end: 20100225
  4. LEUCOVORIN CALCIUM [Suspect]
     Route: 041
     Dates: start: 20100313, end: 20100313
  5. FLUOROURACIL [Suspect]
     Route: 041
     Dates: start: 20100225, end: 20100225
  6. FLUOROURACIL [Suspect]
     Route: 041
     Dates: start: 20100313, end: 20100313
  7. INVESTIGATIONAL DRUG [Concomitant]
     Route: 065
     Dates: start: 20100225
  8. RANTAC [Concomitant]
     Indication: PROPHYLAXIS
     Dates: start: 20100225, end: 20100313
  9. DEXONA [Concomitant]
     Indication: PROPHYLAXIS
     Dates: start: 20100225, end: 20100313
  10. GRANISETRON [Concomitant]
     Indication: PROPHYLAXIS
     Dates: start: 20100225, end: 20100313
  11. AVIL [Concomitant]
     Indication: PROPHYLAXIS
     Dates: start: 20100225, end: 20100313

REACTIONS (1)
  - DEATH [None]
